FAERS Safety Report 16119608 (Version 1)
Quarter: 2019Q1

REPORT INFORMATION
  Report Type: Spontaneous
  Country: US (occurrence: US)
  Receive Date: 20190326
  Receipt Date: 20190326
  Transmission Date: 20190418
  Serious: Yes (Death, Life-Threatening)
  Sender: FDA-Public Use
  Company Number: US-VIFOR (INTERNATIONAL) INC.-VIT-2019-02604

PATIENT
  Age: 53 Year
  Sex: Male
  Weight: 126.8 kg

DRUGS (1)
  1. MIRCERA [Suspect]
     Active Substance: METHOXY POLYETHYLENE GLYCOL-EPOETIN BETA
     Indication: NEPHROGENIC ANAEMIA
     Route: 042
     Dates: start: 20190307

REACTIONS (3)
  - Malaise [Fatal]
  - Loss of consciousness [Fatal]
  - Pruritus [Fatal]

NARRATIVE: CASE EVENT DATE: 20190307
